FAERS Safety Report 14851570 (Version 1)
Quarter: 2018Q2

REPORT INFORMATION
  Report Type: Spontaneous
  Country: US (occurrence: US)
  Receive Date: 20180507
  Receipt Date: 20180507
  Transmission Date: 20180711
  Serious: No
  Sender: FDA-Public Use
  Company Number: US-BRISTOL-MYERS SQUIBB COMPANY-BMS-2018-041402

PATIENT
  Sex: Female

DRUGS (1)
  1. ELIQUIS [Suspect]
     Active Substance: APIXABAN
     Indication: PRODUCT USED FOR UNKNOWN INDICATION
     Dosage: 5 MG, BID,CUTTING THE ELIQUIS 5 MG TABLETS IN HALF FOR A FEW MONTHS.SUPPOSED TO RECEIVE A NINETY-DAY
     Route: 048

REACTIONS (2)
  - Wrong technique in product usage process [Unknown]
  - Drug dispensing error [Unknown]
